FAERS Safety Report 8859227 (Version 2)
Quarter: 2012Q4

REPORT INFORMATION
  Report Type: Report from Study
  Country: US (occurrence: US)
  Receive Date: 20121024
  Receipt Date: 20121116
  Transmission Date: 20130627
  Serious: Yes (Other)
  Sender: FDA-Public Use
  Company Number: US-UCBSA-043531

PATIENT
  Age: 32 Year
  Sex: Female
  Weight: 93.4 kg

DRUGS (15)
  1. LACOSAMIDE [Suspect]
     Indication: EPILEPSY
     Route: 048
     Dates: start: 20110829
  2. LACOSAMIDE [Suspect]
     Indication: EPILEPSY
     Dosage: TAPERED FROM 200 MG QD TO 50 MG QD TO NOTHING
     Route: 048
     Dates: start: 20111013, end: 20111021
  3. ZONEGRAN [Concomitant]
     Indication: EPILEPSY
     Route: 048
     Dates: start: 2004
  4. METFORMIN [Concomitant]
     Indication: POLYCYSTIC OVARIES
     Route: 048
     Dates: start: 201101, end: 20111012
  5. SPRING VALLEY NATURAL SUPER B COMPLEX [Concomitant]
     Indication: DEPRESSION
     Dosage: 2 TABLETS
     Route: 048
     Dates: start: 2009, end: 20111012
  6. EQUATE WOMEN^S ONE DAILY MULTIVITAMIN [Concomitant]
     Indication: GENERAL PHYSICAL HEALTH DETERIORATION
     Dosage: 1 TABLET
     Route: 048
     Dates: start: 2004
  7. PROVENTIL HFA [Concomitant]
     Indication: ASTHMA
     Dosage: INHALANT. 6.7 G ,AS REQUIRED
     Dates: start: 200901
  8. FLUTICASONE [Concomitant]
     Indication: SLEEP APNOEA SYNDROME
     Dosage: SPRAY
     Dates: start: 200901
  9. ASPIRIN (LOW DOSE) [Concomitant]
     Indication: PAIN
     Dates: start: 201101, end: 20111027
  10. ACETAMINOPHEN PM [Concomitant]
     Indication: SLEEP APNOEA SYNDROME
     Dosage: 1000 MG
     Dates: start: 1997
  11. ACETAMINOPHEN PM [Concomitant]
     Indication: HEADACHE
     Dosage: 1000 MG
     Dates: start: 1997
  12. ACETAMINOPHEN PM [Concomitant]
     Indication: PAIN
     Dosage: 1000 MG
     Dates: start: 1997
  13. EXCEDRIN  MENSTRUAL COMPLETE [Concomitant]
     Indication: DYSMENORRHOEA
     Dosage: 2 GELCAPS, AS REQUIRED
     Dates: start: 201101
  14. ATIVAN [Concomitant]
     Indication: CONVULSION
     Route: 048
     Dates: start: 20110824, end: 20110824
  15. ATIVAN [Concomitant]
     Indication: CONVULSION
     Route: 048
     Dates: start: 20110924, end: 20110924

REACTIONS (3)
  - Pregnancy [Recovered/Resolved]
  - Premature delivery [Recovered/Resolved]
  - Pre-eclampsia [Recovered/Resolved]
